FAERS Safety Report 17582635 (Version 6)
Quarter: 2021Q1

REPORT INFORMATION
  Report Type: Report from Study
  Country: None (occurrence: US)
  Receive Date: 20200325
  Receipt Date: 20210105
  Transmission Date: 20210419
  Serious: Yes (Life-Threatening, Hospitalization, Other)
  Sender: FDA-Public Use
  Company Number: US-ABBVIE-20K-163-3334429-00

PATIENT
  Age: 13 Year
  Sex: Female
  Weight: 33.5 kg

DRUGS (84)
  1. METHOTREXATE. [Suspect]
     Active Substance: METHOTREXATE
     Dosage: 5MG QSAT AND 2.5MG QSUN
     Route: 048
     Dates: start: 20161024, end: 20170112
  2. BOOST [Concomitant]
     Active Substance: DIETARY SUPPLEMENT
     Indication: NUTRITIONAL SUPPLEMENTATION
     Dosage: CARTONS
     Route: 048
     Dates: start: 20200102, end: 20200210
  3. FERROUS SULFATE. [Concomitant]
     Active Substance: FERROUS SULFATE
     Indication: SUPPLEMENTATION THERAPY
     Route: 048
     Dates: start: 20200320, end: 2020
  4. TYLENOL [Concomitant]
     Active Substance: ACETAMINOPHEN
     Indication: PAIN MANAGEMENT
     Route: 048
     Dates: start: 20200330
  5. DEXTROSE;POTASSIUM CHLORIDE;SODIUM CHLORIDE [Concomitant]
     Dosage: CONTINUOUS
     Route: 042
     Dates: start: 20200404, end: 20200406
  6. PERIACTIN [Concomitant]
     Active Substance: CYPROHEPTADINE HYDROCHLORIDE
     Indication: CROHN^S DISEASE
     Dosage: 2MG/5 ML SYRUP 4 MG NIGHTLY
     Route: 048
     Dates: start: 20200403, end: 20200406
  7. VALIUM [Concomitant]
     Active Substance: DIAZEPAM
     Indication: CROHN^S DISEASE
     Route: 058
     Dates: start: 20200408, end: 20200408
  8. SOLU?CORTEF [Concomitant]
     Active Substance: HYDROCORTISONE SODIUM SUCCINATE
     Dosage: 7.5.MG IN 0.9% SODIUM CHLORIDE IV
     Route: 042
     Dates: start: 20200404, end: 20200405
  9. OMNIPAQUE [Concomitant]
     Active Substance: IOHEXOL
     Dosage: 9MG IODINE/ML SOLUTION 325 ML
     Route: 048
     Dates: start: 20200417, end: 20200417
  10. CULTURELLE [Concomitant]
     Active Substance: LACTOBACILLUS RHAMNOSUS
     Indication: CROHN^S DISEASE
     Route: 048
     Dates: start: 20200409, end: 20200511
  11. MAGNESIUM SULFATE. [Concomitant]
     Active Substance: MAGNESIUM SULFATE
     Indication: CROHN^S DISEASE
     Route: 042
     Dates: start: 20200404, end: 20200404
  12. MELATONIN [Concomitant]
     Active Substance: MELATONIN
     Indication: CROHN^S DISEASE
     Dosage: NIGHTLY
     Route: 048
     Dates: start: 20200403, end: 20200511
  13. DIPRIVAN [Concomitant]
     Active Substance: PROPOFOL
     Indication: CROHN^S DISEASE
     Dosage: INTRA?PROCEDURE
     Route: 042
     Dates: start: 20200403, end: 20200403
  14. HUMIRA [Suspect]
     Active Substance: ADALIMUMAB
     Indication: CROHN^S DISEASE
     Route: 058
     Dates: start: 20151111, end: 20170112
  15. FOLVITE [Concomitant]
     Active Substance: FOLIC ACID
     Indication: CROHN^S DISEASE
     Route: 048
     Dates: start: 20160330, end: 20200210
  16. PREDNISONE. [Concomitant]
     Active Substance: PREDNISONE
     Indication: CROHN^S DISEASE
     Route: 048
     Dates: start: 20191122, end: 20200210
  17. FLAGYL [Concomitant]
     Active Substance: METRONIDAZOLE\METRONIDAZOLE HYDROCHLORIDE
     Route: 042
     Dates: start: 20200403, end: 20200406
  18. TYLENOL [Concomitant]
     Active Substance: ACETAMINOPHEN
     Dosage: 160 MG/5ML
     Route: 048
     Dates: start: 20200404, end: 20200404
  19. FORTAZ [Concomitant]
     Active Substance: CEFTAZIDIME SODIUM
     Indication: CROHN^S DISEASE
     Dosage: 1800MG/0.9% SODIUM CHLORIDE
     Route: 042
     Dates: start: 20200403, end: 20200406
  20. FAT EMULSION NOS [Concomitant]
     Active Substance: EGG PHOSPHOLIPIDS\SAFFLOWER OIL\SOYBEAN OIL
     Dosage: LIPIDS 20% INFUSION 36.2 G
     Route: 042
     Dates: start: 20200424, end: 20200425
  21. FAT EMULSION NOS [Concomitant]
     Active Substance: EGG PHOSPHOLIPIDS\SAFFLOWER OIL\SOYBEAN OIL
     Dosage: LIPIDS 20% INFUSION 37.4 G
     Route: 042
     Dates: start: 20200429, end: 20200429
  22. DEXTROSE;POTASSIUM CHLORIDE;SODIUM CHLORIDE [Concomitant]
     Indication: CROHN^S DISEASE
     Dosage: CONTINUOUS
     Route: 042
     Dates: start: 20200403, end: 20200404
  23. FERRIC CARBOXYMALTOSE [Concomitant]
     Active Substance: FERRIC CARBOXYMALTOSE
     Dosage: 550MG IN 0.9% SODIUM CHLORIDE 250 ML IV
     Route: 042
     Dates: start: 20200415, end: 20200415
  24. PAIN EASE [Concomitant]
     Active Substance: CAMPHOR OIL\MENTHOL\METHYL SALICYLATE
     Indication: CROHN^S DISEASE
     Dosage: AS REQUIRED
     Route: 061
     Dates: start: 20200402, end: 20200511
  25. MELATONIN [Concomitant]
     Active Substance: MELATONIN
     Indication: SLEEP DISORDER THERAPY
     Route: 048
     Dates: start: 20200320, end: 20200605
  26. MELATONIN [Concomitant]
     Active Substance: MELATONIN
     Indication: CROHN^S DISEASE
     Route: 048
     Dates: start: 20200511, end: 20200605
  27. SODIUM CHLORIDE 0.9% [Concomitant]
     Active Substance: SODIUM CHLORIDE
     Indication: CROHN^S DISEASE
     Dosage: CONTINUOUS
     Route: 042
     Dates: start: 20200406, end: 20200501
  28. SODIUM CHLORIDE 0.9% [Concomitant]
     Active Substance: SODIUM CHLORIDE
     Route: 042
     Dates: start: 20200409, end: 20200415
  29. CORTROSYN [Concomitant]
     Active Substance: COSYNTROPIN
     Indication: CROHN^S DISEASE
     Dosage: MCG/ML 0.9% SODIUM CHLORIDE 1 MCG
     Route: 042
     Dates: start: 20200415, end: 20200417
  30. SUBLIMAZE [Concomitant]
     Active Substance: FENTANYL CITRATE
     Dosage: 50MCG/ML IV
     Route: 042
     Dates: start: 20200417, end: 20200417
  31. MARINOL [Concomitant]
     Active Substance: DRONABINOL
     Indication: CROHN^S DISEASE
     Route: 048
     Dates: start: 20200408, end: 20200408
  32. NUTRISOURCE FIBER [Concomitant]
     Indication: CROHN^S DISEASE
     Route: 048
     Dates: start: 20200406, end: 20200406
  33. METHOTREXATE. [Suspect]
     Active Substance: METHOTREXATE
     Indication: CROHN^S DISEASE
     Route: 048
     Dates: start: 20151111, end: 20161023
  34. FERROUS SULFATE. [Concomitant]
     Active Substance: FERROUS SULFATE
     Indication: CROHN^S DISEASE
     Dosage: 15MG OF ELEMENTAL IRON/ML SOLUTION 70 MG OF ELEMENTAL IRON
     Route: 048
     Dates: start: 20200404, end: 20200406
  35. FAT EMULSION NOS [Concomitant]
     Active Substance: EGG PHOSPHOLIPIDS\SAFFLOWER OIL\SOYBEAN OIL
     Indication: CROHN^S DISEASE
     Dosage: LIPIDS 20% INFUSION 28.16 G
     Route: 042
     Dates: start: 20200406, end: 20200407
  36. FAT EMULSION NOS [Concomitant]
     Active Substance: EGG PHOSPHOLIPIDS\SAFFLOWER OIL\SOYBEAN OIL
     Dosage: LIPIDS 20% INFUSION 35.2 G
     Route: 042
     Dates: start: 20200407, end: 20200408
  37. MAGNESIUM SULFATE. [Concomitant]
     Active Substance: MAGNESIUM SULFATE
     Route: 042
     Dates: start: 20200407, end: 20200407
  38. VERSED [Concomitant]
     Active Substance: MIDAZOLAM HYDROCHLORIDE
     Indication: CROHN^S DISEASE
     Route: 030
     Dates: start: 20200417, end: 20200417
  39. MORPHINE [Concomitant]
     Active Substance: MORPHINE
     Indication: CROHN^S DISEASE
     Dosage: AS REQUIRED
     Route: 030
     Dates: start: 20200409, end: 20200409
  40. MORPHINE [Concomitant]
     Active Substance: MORPHINE
     Dosage: CONTINUOUS
     Route: 030
     Dates: start: 20200411, end: 20200412
  41. VANCOCIN [Concomitant]
     Active Substance: VANCOMYCIN HYDROCHLORIDE
     Indication: CROHN^S DISEASE
     Route: 042
     Dates: start: 20200404, end: 20200405
  42. FLAGYL [Concomitant]
     Active Substance: METRONIDAZOLE\METRONIDAZOLE HYDROCHLORIDE
     Indication: CROHN^S DISEASE
     Route: 048
     Dates: start: 20191122, end: 20191203
  43. HYDROCORTISONE. [Concomitant]
     Active Substance: HYDROCORTISONE
     Indication: ADRENAL INSUFFICIENCY
     Dosage: TAPERED FOR 8 WEEKS
     Route: 048
     Dates: start: 20171020, end: 201712
  44. ZOFRAN [Concomitant]
     Active Substance: ONDANSETRON HYDROCHLORIDE
     Indication: NAUSEA
     Route: 048
     Dates: start: 20200320
  45. ZOFRAN [Concomitant]
     Active Substance: ONDANSETRON HYDROCHLORIDE
     Indication: CROHN^S DISEASE
     Route: 042
     Dates: start: 20200402, end: 20200511
  46. OFIRMEV [Concomitant]
     Active Substance: ACETAMINOPHEN
     Indication: CROHN^S DISEASE
     Route: 042
     Dates: start: 20200406, end: 20200407
  47. LIDOCAINE. [Concomitant]
     Active Substance: LIDOCAINE
     Indication: CROHN^S DISEASE
     Route: 061
     Dates: start: 20200402, end: 20200511
  48. DIFLUCAN [Concomitant]
     Active Substance: FLUCONAZOLE
     Indication: CROHN^S DISEASE
     Route: 042
     Dates: start: 20200403, end: 20200403
  49. MICOTIN [Concomitant]
     Indication: CROHN^S DISEASE
     Route: 061
     Dates: start: 20200506, end: 20200511
  50. METHOTREXATE. [Suspect]
     Active Substance: METHOTREXATE
     Route: 048
     Dates: start: 20170420, end: 20180809
  51. METHOTREXATE. [Suspect]
     Active Substance: METHOTREXATE
     Route: 048
     Dates: start: 20181217, end: 20200210
  52. STELARA [Concomitant]
     Active Substance: USTEKINUMAB
     Indication: CROHN^S DISEASE
     Route: 041
     Dates: start: 20171004, end: 20171004
  53. PERIACTIN [Concomitant]
     Active Substance: CYPROHEPTADINE HYDROCHLORIDE
     Indication: CROHN^S DISEASE
     Route: 048
     Dates: start: 20181204, end: 20200210
  54. HYDROCORTISONE. [Concomitant]
     Active Substance: HYDROCORTISONE
     Dosage: PRN
     Route: 048
     Dates: start: 201712, end: 20200320
  55. IBUPROFEN. [Concomitant]
     Active Substance: IBUPROFEN
     Indication: PAIN MANAGEMENT
     Route: 048
     Dates: start: 20200320
  56. FAT EMULSION NOS [Concomitant]
     Active Substance: EGG PHOSPHOLIPIDS\SAFFLOWER OIL\SOYBEAN OIL
     Dosage: LIPIDS 20% INFUSION 49.28 G
     Route: 042
     Dates: start: 20200410, end: 20200413
  57. FAT EMULSION NOS [Concomitant]
     Active Substance: EGG PHOSPHOLIPIDS\SAFFLOWER OIL\SOYBEAN OIL
     Dosage: LIPIDS 20% INFUSION 52.8 G
     Route: 042
     Dates: start: 20200413, end: 20200414
  58. FERRIC CARBOXYMALTOSE [Concomitant]
     Active Substance: FERRIC CARBOXYMALTOSE
     Indication: CROHN^S DISEASE
     Dosage: 525MG IN 0.9% SODIUM CHLORIDE 250 ML IV
     Route: 042
     Dates: start: 20200408, end: 20200408
  59. LIDOCAINE. [Concomitant]
     Active Substance: LIDOCAINE
     Route: 030
     Dates: start: 20200403, end: 20200403
  60. LIDOCAINE. [Concomitant]
     Active Substance: LIDOCAINE
     Route: 030
     Dates: start: 20200409, end: 20200409
  61. LIDOCAINE. [Concomitant]
     Active Substance: LIDOCAINE
     Route: 062
     Dates: start: 20200413, end: 20200427
  62. TORADOL [Concomitant]
     Active Substance: KETOROLAC TROMETHAMINE
     Indication: CROHN^S DISEASE
     Route: 030
     Dates: start: 20200404, end: 20200409
  63. LACTATED RINGERS SOLUTION [Concomitant]
     Active Substance: CALCIUM CHLORIDE\POTASSIUM CHLORIDE\SODIUM CHLORIDE\SODIUM LACTATE
     Indication: CROHN^S DISEASE
     Route: 042
     Dates: start: 20200501, end: 20200501
  64. POTASSIUM CHLORIDE AND SODIUM CHLORIDE [Concomitant]
     Active Substance: POTASSIUM CHLORIDE\SODIUM CHLORIDE
     Indication: CROHN^S DISEASE
     Dosage: 10 MEQ IN 0.9% SODIUM CHLORIDE 1,000 ML IV INFUSION CONTINUOUS
     Route: 042
     Dates: start: 20200403, end: 20200414
  65. VANCOCIN [Concomitant]
     Active Substance: VANCOMYCIN HYDROCHLORIDE
     Route: 042
     Dates: start: 20200405, end: 20200406
  66. STELARA [Concomitant]
     Active Substance: USTEKINUMAB
     Route: 058
     Dates: start: 20171009, end: 20200113
  67. STELARA [Concomitant]
     Active Substance: USTEKINUMAB
     Route: 058
     Dates: start: 20200116, end: 20200210
  68. SODIUM CHLORIDE 0.9% [Concomitant]
     Active Substance: SODIUM CHLORIDE
     Route: 042
     Dates: start: 20200415, end: 20200417
  69. FAT EMULSION NOS [Concomitant]
     Active Substance: EGG PHOSPHOLIPIDS\SAFFLOWER OIL\SOYBEAN OIL
     Dosage: LIPIDS 20% INFUSION 42.24 G
     Route: 042
     Dates: start: 20200416, end: 20200417
  70. SUBLIMAZE [Concomitant]
     Active Substance: FENTANYL CITRATE
     Dosage: INTRA?PROCEDURE
     Route: 042
     Dates: start: 20200417, end: 20200417
  71. SOLU?CORTEF [Concomitant]
     Active Substance: HYDROCORTISONE SODIUM SUCCINATE
     Indication: CROHN^S DISEASE
     Dosage: 15.5MG IN 0.9% SODIUM CHLORIDE IV
     Route: 042
     Dates: start: 20200402, end: 20200403
  72. OMNIPAQUE [Concomitant]
     Active Substance: IOHEXOL
     Indication: CROHN^S DISEASE
     Dosage: 300MG IODINE/ML INJECTION 70 ML
     Route: 030
     Dates: start: 20200403, end: 20200403
  73. DIPRIVAN [Concomitant]
     Active Substance: PROPOFOL
     Dosage: INTRA?PROCEDURE
     Route: 042
     Dates: start: 20200417, end: 20200417
  74. PERIACTIN [Concomitant]
     Active Substance: CYPROHEPTADINE HYDROCHLORIDE
     Indication: NUTRITIONAL SUPPLEMENTATION
     Route: 048
     Dates: start: 20200320, end: 20200405
  75. ACTIVASE [Concomitant]
     Active Substance: ALTEPLASE
     Indication: CROHN^S DISEASE
     Route: 042
     Dates: start: 20200417, end: 20200417
  76. FAT EMULSION NOS [Concomitant]
     Active Substance: EGG PHOSPHOLIPIDS\SAFFLOWER OIL\SOYBEAN OIL
     Dosage: LIPIDS 20% INFUSION 43.44 G
     Route: 042
     Dates: start: 20200420, end: 20200421
  77. SUBLIMAZE [Concomitant]
     Active Substance: FENTANYL CITRATE
     Indication: CROHN^S DISEASE
     Dosage: INTRA?PROCEDURE
     Route: 042
     Dates: start: 20200403, end: 20200403
  78. LIDOCAINE. [Concomitant]
     Active Substance: LIDOCAINE
     Route: 061
     Dates: start: 20200403, end: 20200426
  79. MARINOL [Concomitant]
     Active Substance: DRONABINOL
     Route: 048
     Dates: start: 20200416, end: 20200502
  80. DIFLUCAN [Concomitant]
     Active Substance: FLUCONAZOLE
     Route: 042
     Dates: start: 20200404, end: 20200424
  81. HEPARIN [Concomitant]
     Active Substance: HEPARIN SODIUM
     Indication: CROHN^S DISEASE
     Dosage: 100 UNIT/ML IV 3 ML
     Route: 042
     Dates: start: 20200501, end: 20200502
  82. TORADOL [Concomitant]
     Active Substance: KETOROLAC TROMETHAMINE
     Route: 030
     Dates: start: 20200413, end: 20200415
  83. ROXICODONE [Concomitant]
     Active Substance: OXYCODONE HYDROCHLORIDE
     Indication: CROHN^S DISEASE
     Dosage: 5MG/5 ML SOLUTION 5 MG
     Route: 048
     Dates: start: 20200404, end: 20200415
  84. ROXICODONE [Concomitant]
     Active Substance: OXYCODONE HYDROCHLORIDE
     Dosage: 5MG/5 ML SOLUTION 2.5 MG
     Route: 048
     Dates: start: 20200415, end: 20200511

REACTIONS (3)
  - Anastomotic leak [Recovered/Resolved]
  - Abdominal abscess [Recovered/Resolved]
  - Ileal stenosis [Recovered/Resolved]

NARRATIVE: CASE EVENT DATE: 20191122
